FAERS Safety Report 16238414 (Version 1)
Quarter: 2019Q2

REPORT INFORMATION
  Report Type: Report from Study
  Country: MX (occurrence: MX)
  Receive Date: 20190425
  Receipt Date: 20190425
  Transmission Date: 20190711
  Serious: Yes (Other)
  Sender: FDA-Public Use
  Company Number: PHHY2019MX087524

PATIENT
  Age: 61 Year
  Sex: Female
  Weight: 77 kg

DRUGS (7)
  1. CO-DIOVAN [Suspect]
     Active Substance: HYDROCHLOROTHIAZIDE\VALSARTAN
     Indication: HYPERTENSION
     Dosage: 1 DF, QD (HYDROCHLOROTHIAZIDE 25 MG AND VALSARTAN 320 MG)
     Route: 048
     Dates: start: 201306
  2. OMEPRAZOL [Concomitant]
     Active Substance: OMEPRAZOLE
     Indication: GASTROINTESTINAL DISORDER PROPHYLAXIS
     Dosage: UNK (4 YEARS AGO)
     Route: 065
  3. RIVOTRIL [Concomitant]
     Active Substance: CLONAZEPAM
     Indication: SLEEP DISORDER
     Dosage: 3 DRP, UNK (AT NIGHT)
     Route: 048
  4. ASPIRIN PROTECT [Concomitant]
     Active Substance: ASPIRIN
     Indication: INFARCTION
     Dosage: 1 DF, QD
     Route: 065
     Dates: start: 2013
  5. KARET [Concomitant]
     Indication: THYROID DISORDER
     Dosage: 75 UG, UNK
     Route: 048
     Dates: start: 201601
  6. IVEL [Concomitant]
     Indication: SOMNOLENCE
     Dosage: 1 DF, QD (3 YERAS AGO)
     Route: 065
  7. LEVOTHYROXINE SODIUM. [Concomitant]
     Active Substance: LEVOTHYROXINE SODIUM
     Indication: THYROID DISORDER
     Dosage: UNK
     Route: 065

REACTIONS (5)
  - Thyroid neoplasm [Unknown]
  - Biliary colic [Recovered/Resolved]
  - Atrial fibrillation [Unknown]
  - Cholelithiasis [Recovered/Resolved]
  - Blood pressure inadequately controlled [Recovering/Resolving]

NARRATIVE: CASE EVENT DATE: 20150713
